FAERS Safety Report 10902173 (Version 1)
Quarter: 2015Q1

REPORT INFORMATION
  Report Type: Spontaneous
  Country: ID (occurrence: ID)
  Receive Date: 20150310
  Receipt Date: 20150310
  Transmission Date: 20150721
  Serious: Yes (Hospitalization)
  Sender: FDA-Public Use
  Company Number: ID-BAYER-2015-031213

PATIENT

DRUGS (1)
  1. CIPROXIN INFUSION 0.4 G [Suspect]
     Active Substance: CIPROFLOXACIN
     Dosage: 400MG/200ML
     Route: 042

REACTIONS (1)
  - Dermatitis allergic [None]
